FAERS Safety Report 7360894-7 (Version None)
Quarter: 2011Q1

REPORT INFORMATION
  Report Type: 
  Country: None (occurrence: None)
  Receive Date: 20110318
  Receipt Date: 20110311
  Transmission Date: 20110831
  Serious: Yes (Hospitalization)
  Sender: FDA-Public Use
  Company Number: US-B.I. PHARMACEUTICALS,INC./RIDGEFIELD-2011-BP-08058BP

PATIENT
  Sex: Female

DRUGS (7)
  1. POTASSIUM [Concomitant]
     Indication: OEDEMA
  2. FUROSEMIDE [Concomitant]
     Indication: OEDEMA
  3. FOSAMAX [Concomitant]
     Indication: BONE DISORDER
  4. SINGULAIR [Concomitant]
     Indication: EMPHYSEMA
  5. PRADAXA [Suspect]
     Indication: ATRIAL FIBRILLATION
     Dosage: 300 MG
     Route: 048
  6. CARDIEZEM [Concomitant]
     Indication: CARDIAC DISORDER
  7. ADVAIR DISKUS 100/50 [Concomitant]
     Indication: EMPHYSEMA

REACTIONS (1)
  - BRADYARRHYTHMIA [None]
